FAERS Safety Report 4433380-1 (Version None)
Quarter: 2004Q3

REPORT INFORMATION
  Report Type: 
  Country: None (occurrence: None)
  Receive Date: 20040824
  Receipt Date: 20040812
  Transmission Date: 20050211
  Serious: Yes (Death)
  Sender: FDA-Public Use
  Company Number: 04H-078-0270566-00

PATIENT
  Sex: Female
  Weight: 3.15 kg

DRUGS (2)
  1. AMINOPHYLLIN [Suspect]
     Dosage: 3 TIMES, TRANSPLACENTAL
     Route: 064
  2. HYDROCORTISONE [Concomitant]

REACTIONS (14)
  - AREFLEXIA [None]
  - COMA [None]
  - CONVULSION NEONATAL [None]
  - DRUG EXPOSURE DURING PREGNANCY [None]
  - DRUG TOXICITY [None]
  - HYPOREFLEXIA [None]
  - HYPOTONIA NEONATAL [None]
  - LATE METABOLIC ACIDOSIS OF NEWBORN [None]
  - METABOLIC ACIDOSIS [None]
  - MYDRIASIS [None]
  - NEONATAL DISORDER [None]
  - NEONATAL TACHYCARDIA [None]
  - RESPIRATORY DISORDER NEONATAL [None]
  - SUPRAVENTRICULAR TACHYCARDIA [None]
